FAERS Safety Report 4471759-2 (Version None)
Quarter: 2004Q4

REPORT INFORMATION
  Report Type: 
  Country: None (occurrence: None)
  Receive Date: 20041006
  Receipt Date: 20040922
  Transmission Date: 20050328
  Serious: Yes (Hospitalization)
  Sender: FDA-Public Use
  Company Number: 2004235246GB

PATIENT
  Age: 46 Year
  Sex: Female

DRUGS (5)
  1. FARMORUBICIN           (EPIRUBICIN HYDROCHLORIDE) [Suspect]
     Indication: BREAST CANCER
     Dosage: 110 EVERY 3 WEEKS, CYCLIC,IV
     Route: 042
     Dates: start: 20040629, end: 20040629
  2. ZOLEDRONIC ACID [Suspect]
     Indication: METASTASES TO BONE
     Dosage: 4 MG, 3 TIMES A WEEK , IV
     Route: 042
     Dates: start: 20040629
  3. FLUOROURACIL [Suspect]
     Indication: BREAST CANCER
     Dosage: 1100 EVERY 3 WEEKS, CYCLIC ,IV
     Route: 042
     Dates: start: 20040629, end: 20040629
  4. CYCLOPHOSPHAMIDE [Suspect]
     Indication: BREAST CANCER
     Dosage: 1100 EVERY 3 WEEKS, CYCLIC ,IV
     Route: 042
     Dates: start: 20040629, end: 20040629
  5. ERYTHROMYCIN [Concomitant]

REACTIONS (7)
  - DEEP VEIN THROMBOSIS [None]
  - ERYTHEMA [None]
  - HAEMATURIA [None]
  - POST PROCEDURAL VOMITING [None]
  - PYREXIA [None]
  - THROMBOPHLEBITIS SUPERFICIAL [None]
  - VAGINAL HAEMORRHAGE [None]
